FAERS Safety Report 18514695 (Version 2)
Quarter: 2024Q3

REPORT INFORMATION
  Report Type: Spontaneous
  Country: BE (occurrence: BE)
  Receive Date: 20201117
  Receipt Date: 20240917
  Transmission Date: 20241017
  Serious: Yes (Hospitalization, Other)
  Sender: AUROBINDO
  Company Number: BE-ROCHE-2211956

PATIENT
  Age: 76 Year
  Sex: Male
  Weight: 77 kg

DRUGS (16)
  1. IRINOTECAN [Suspect]
     Active Substance: IRINOTECAN
     Indication: Colorectal cancer metastatic
     Dosage: 5750 MILLIGRAM, CYCLICAL
     Route: 042
     Dates: start: 20181016
  2. BEVACIZUMAB [Suspect]
     Active Substance: BEVACIZUMAB
     Indication: Colorectal cancer metastatic
     Dosage: 387.5 MILLIGRAM, CYCLICAL
     Route: 042
  3. FLUOROURACIL [Suspect]
     Active Substance: FLUOROURACIL
     Indication: Colorectal cancer metastatic
     Dosage: 385 MILLIGRAM, CYCLICAL
     Route: 042
     Dates: start: 20181016
  4. LEUCOVORIN [Suspect]
     Active Substance: LEUCOVORIN\LEUCOVORIN CALCIUM
     Indication: Colorectal cancer metastatic
     Dosage: 385 MILLIGRAM, CYCLICAL
     Route: 042
     Dates: start: 20181016
  5. FLUOROURACIL [Suspect]
     Active Substance: FLUOROURACIL
     Indication: Colorectal cancer metastatic
     Dosage: 385 MILLIGRAM, CYCLICAL
     Route: 042
     Dates: start: 20181016
  6. HUMAN RED BLOOD CELL [Concomitant]
     Active Substance: HUMAN RED BLOOD CELL
     Indication: Product used for unknown indication
     Dosage: UNK
     Route: 065
     Dates: start: 20181102
  7. IMODIUM [Concomitant]
     Active Substance: LOPERAMIDE HYDROCHLORIDE
     Indication: Product used for unknown indication
     Dosage: UNK
     Route: 065
     Dates: start: 20181002
  8. DILTIAZEM HYDROCHLORIDE [Concomitant]
     Active Substance: DILTIAZEM HYDROCHLORIDE
     Indication: Product used for unknown indication
     Dosage: UNK, MEDICAL HISTORY
     Route: 065
     Dates: start: 2008
  9. NADROPARIN CALCIUM [Concomitant]
     Active Substance: NADROPARIN CALCIUM
     Indication: Product used for unknown indication
     Dosage: UNK, MEDICAL HISTORY
     Route: 065
     Dates: start: 201710
  10. CIPROFLOXACIN [Concomitant]
     Active Substance: CIPROFLOXACIN
     Indication: Diarrhoea
     Dosage: UNK
     Route: 065
     Dates: start: 20181231
  11. ACETAMINOPHEN [Concomitant]
     Active Substance: ACETAMINOPHEN
     Indication: Abdominal pain lower
     Dosage: UNK
     Route: 065
     Dates: start: 20190107
  12. SODIUM BICARBONATE [Concomitant]
     Active Substance: SODIUM BICARBONATE
     Indication: Product used for unknown indication
     Dosage: UNK
     Route: 065
     Dates: start: 20181218
  13. AZITHROMYCIN [Concomitant]
     Active Substance: AZITHROMYCIN
     Indication: Diarrhoea
     Dosage: UNK
     Route: 065
     Dates: start: 20190409
  14. MOTILIUM [Concomitant]
     Active Substance: DOMPERIDONE
     Indication: Nausea
     Dosage: UNK
     Route: 065
     Dates: start: 20190107
  15. LIDOCAINE [Concomitant]
     Active Substance: LIDOCAINE
     Indication: Stomatitis
     Dosage: UNK
     Route: 065
     Dates: start: 20181205
  16. ALIZAPRIDE HYDROCHLORIDE [Concomitant]
     Active Substance: ALIZAPRIDE HYDROCHLORIDE
     Indication: Nausea
     Dosage: UNK
     Route: 065
     Dates: start: 20190107

REACTIONS (21)
  - Polyneuropathy [Not Recovered/Not Resolved]
  - Dysgeusia [Not Recovered/Not Resolved]
  - Epistaxis [Not Recovered/Not Resolved]
  - Abdominal pain lower [Not Recovered/Not Resolved]
  - Nausea [Not Recovered/Not Resolved]
  - Cholestasis [Not Recovered/Not Resolved]
  - Hyponatraemia [Unknown]
  - Lacrimation increased [Recovered/Resolved]
  - Dyspnoea [Recovered/Resolved]
  - Diarrhoea [Recovered/Resolved]
  - Faecaloma [Recovered/Resolved]
  - Dry skin [Recovered/Resolved]
  - Peripheral sensory neuropathy [Recovered/Resolved]
  - Palmar-plantar erythrodysaesthesia syndrome [Recovered/Resolved]
  - Peripheral motor neuropathy [Recovered/Resolved]
  - Stomatitis [Recovered/Resolved]
  - Neutropenia [Recovered/Resolved]
  - Anaemia [Recovered/Resolved]
  - Mucosal inflammation [Recovered/Resolved]
  - Fatigue [Recovered/Resolved]
  - Hypokalaemia [Recovered/Resolved]

NARRATIVE: CASE EVENT DATE: 20181026
